FAERS Safety Report 6904425-1 (Version None)
Quarter: 2010Q3

REPORT INFORMATION
  Report Type: 
  Country: None (occurrence: None)
  Receive Date: 20100804
  Receipt Date: 20090526
  Transmission Date: 20110219
  Serious: No
  Sender: FDA-Public Use
  Company Number: US-PFIZER INC-2009175674

PATIENT
  Sex: Female
  Weight: 59 kg

DRUGS (8)
  1. LYRICA [Suspect]
     Indication: ARTHRITIS
     Dosage: UNK
     Dates: start: 20090217, end: 20090219
  2. LYRICA [Suspect]
     Indication: SPINAL DISORDER
  3. LYRICA [Suspect]
     Indication: PAIN
  4. VICODIN [Concomitant]
     Dosage: UNK
  5. OXYCODONE [Concomitant]
     Dosage: UNK
  6. CLONIDINE [Concomitant]
  7. TOPROL-XL [Concomitant]
     Dosage: UNK
  8. AMLODIPINE [Concomitant]
     Dosage: UNK

REACTIONS (4)
  - DIPLOPIA [None]
  - MALAISE [None]
  - NERVOUSNESS [None]
  - URINARY RETENTION [None]
